FAERS Safety Report 12690543 (Version 1)
Quarter: 2016Q3

REPORT INFORMATION
  Report Type: Report from Study
  Country: BE (occurrence: BE)
  Receive Date: 20160826
  Receipt Date: 20160826
  Transmission Date: 20161109
  Serious: Yes (Hospitalization)
  Sender: FDA-Public Use
  Company Number: BE-ABBVIE-16K-013-1705109-00

PATIENT
  Age: 82 Year
  Sex: Male

DRUGS (4)
  1. DUODOPA [Suspect]
     Active Substance: CARBIDOPA\LEVODOPA
     Indication: PARKINSON^S DISEASE
     Dosage: AM= 2 ML; CD= 1.6 ML/H DURING 16 HRS; ED= 1 ML
     Route: 050
     Dates: start: 20130521, end: 20130524
  2. DUODOPA [Suspect]
     Active Substance: CARBIDOPA\LEVODOPA
     Dosage: DOSES CONTINUOUSLY MONITORED AND ADAPTED
     Route: 050
     Dates: start: 20130524, end: 20150715
  3. DUODOPA [Suspect]
     Active Substance: CARBIDOPA\LEVODOPA
     Dosage: AM= 2 ML; CD= 1.5 ML/H DURING 16 HRS; ED= 1 ML
     Route: 050
     Dates: start: 20150715, end: 20160815
  4. STALEVO [Concomitant]
     Active Substance: CARBIDOPA\ENTACAPONE\LEVODOPA
     Indication: PRODUCT USED FOR UNKNOWN INDICATION
     Dosage: FORM STRENGTH: 50MG/12.5MG/200MG
     Dates: start: 20160815

REACTIONS (6)
  - Foreign body [Unknown]
  - Device connection issue [Unknown]
  - Intentional medical device removal by patient [Unknown]
  - Dementia [Unknown]
  - Device dislocation [Unknown]
  - Stoma site ulcer [Unknown]

NARRATIVE: CASE EVENT DATE: 20160815
